FAERS Safety Report 7454469-9 (Version None)
Quarter: 2011Q2

REPORT INFORMATION
  Report Type: 
  Country: None (occurrence: None)
  Receive Date: 20110425
  Receipt Date: 20110412
  Transmission Date: 20111010
  Serious: Yes (Death, Hospitalization)
  Sender: FDA-Public Use
  Company Number: 2011AC000012

PATIENT
  Age: 79 Year
  Sex: Female

DRUGS (32)
  1. INSULIN [Concomitant]
  2. REGLAN [Concomitant]
  3. FLUNISOLIDE [Concomitant]
  4. LUMIGAN [Concomitant]
  5. MULTIVITAMIN [Concomitant]
  6. CALCIUM [Concomitant]
  7. POTASSIUM CHLORIDE [Concomitant]
  8. TIMOLOL MALEATE [Concomitant]
  9. ACTOS [Concomitant]
  10. NITRO-BID [Concomitant]
  11. LOTRIMIN [Concomitant]
  12. PROZAC [Concomitant]
  13. PREVACID [Concomitant]
  14. BACTROBAN [Concomitant]
  15. CRESTOR [Concomitant]
  16. FLONASE [Concomitant]
  17. FUROSEMIDE [Concomitant]
  18. AZOPT [Concomitant]
  19. SINGULAIR [Concomitant]
  20. ZOFRAN [Concomitant]
  21. ASPIRIN [Concomitant]
  22. SIMVASTATIN [Concomitant]
  23. ALPHAGAN [Concomitant]
  24. CRESTOR [Concomitant]
  25. ACETAMINOPHEN [Concomitant]
  26. VIBRAMYCIN [Concomitant]
  27. ZOCOR [Concomitant]
  28. CARVEDILOL [Concomitant]
  29. VITAMINS [Concomitant]
  30. CLOTRIMAZOLE [Concomitant]
  31. DIGOXIN [Suspect]
     Indication: ATRIAL FIBRILLATION
     Dosage: 0.25 MG;DQ;PO
     Route: 048
     Dates: start: 20071213
  32. LORTAB [Concomitant]

REACTIONS (48)
  - DYSPNOEA [None]
  - ORTHOPNOEA [None]
  - ATELECTASIS [None]
  - ATRIAL FIBRILLATION [None]
  - ARTHRITIS [None]
  - DIABETIC NEUROPATHY [None]
  - TRICUSPID VALVE INCOMPETENCE [None]
  - PLEURAL EFFUSION [None]
  - IMPAIRED GASTRIC EMPTYING [None]
  - TYPE 2 DIABETES MELLITUS [None]
  - PULMONARY OEDEMA [None]
  - EPISTAXIS [None]
  - CARDIAC ARREST [None]
  - OEDEMA [None]
  - CHOKING [None]
  - ABNORMAL BEHAVIOUR [None]
  - HYPOKALAEMIA [None]
  - INJURY [None]
  - ECONOMIC PROBLEM [None]
  - ASTHENIA [None]
  - OESOPHAGEAL STENOSIS [None]
  - MYOCARDIAL INFARCTION [None]
  - SKIN ULCER [None]
  - UNEVALUABLE EVENT [None]
  - OEDEMA PERIPHERAL [None]
  - MITRAL VALVE INCOMPETENCE [None]
  - FLAT AFFECT [None]
  - PLEURITIC PAIN [None]
  - DYSPHAGIA [None]
  - PULSE ABSENT [None]
  - APNOEA [None]
  - REGURGITATION [None]
  - PULMONARY VALVE INCOMPETENCE [None]
  - DIASTOLIC DYSFUNCTION [None]
  - DIZZINESS POSTURAL [None]
  - DIABETIC GASTROPATHY [None]
  - CARDIOACTIVE DRUG LEVEL ABOVE THERAPEUTIC [None]
  - BLOOD POTASSIUM DECREASED [None]
  - DYSPNOEA PAROXYSMAL NOCTURNAL [None]
  - MYOCARDIAL ISCHAEMIA [None]
  - HEPATIC CYST [None]
  - BRADYCARDIA [None]
  - IRRITABILITY [None]
  - CHONDROCALCINOSIS PYROPHOSPHATE [None]
  - ORTHOSTATIC HYPOTENSION [None]
  - HYPOVOLAEMIA [None]
  - UNRESPONSIVE TO STIMULI [None]
  - LUNG INFILTRATION [None]
